FAERS Safety Report 5259774-2 (Version None)
Quarter: 2007Q1

REPORT INFORMATION
  Report Type: 
  Country: None (occurrence: None)
  Receive Date: 20070307
  Receipt Date: 20070227
  Transmission Date: 20070707
  Serious: Yes (Hospitalization)
  Sender: FDA-Public Use
  Company Number: 2007BI004645

PATIENT
  Age: 56 Year
  Sex: Female

DRUGS (1)
  1. NATALIZUMAB [Suspect]
     Indication: MULTIPLE SCLEROSIS
     Dosage: IV
     Route: 042
     Dates: start: 20061218, end: 20070222

REACTIONS (4)
  - CARDIAC DISORDER [None]
  - CHEST DISCOMFORT [None]
  - FEELING ABNORMAL [None]
  - MUSCULOSKELETAL PAIN [None]
